FAERS Safety Report 4365090-3 (Version None)
Quarter: 2004Q2

REPORT INFORMATION
  Report Type: 
  Country: None (occurrence: None)
  Receive Date: 20040521
  Receipt Date: 20040517
  Transmission Date: 20050107
  Serious: Yes (Life-Threatening, Hospitalization)
  Sender: FDA-Public Use
  Company Number: 2004-116090-NL

PATIENT
  Age: 53 Year
  Sex: Female

DRUGS (3)
  1. PANCURONIUM BROMIDE [Suspect]
     Indication: INDUCTION OF ANAESTHESIA
     Dosage: DF INTRAVENOUS NOS
     Route: 042
     Dates: start: 20031110, end: 20031110
  2. FENTANYL [Concomitant]
  3. ETOMIDATE [Concomitant]

REACTIONS (2)
  - ANAPHYLACTIC SHOCK [None]
  - BRONCHOSPASM [None]
